FAERS Safety Report 4549578-8 (Version None)
Quarter: 2005Q1

REPORT INFORMATION
  Report Type: 
  Country: None (occurrence: None)
  Receive Date: 20050111
  Receipt Date: 20050105
  Transmission Date: 20050727
  Serious: Yes (Life-Threatening, Hospitalization)
  Sender: FDA-Public Use
  Company Number: US-MERCK-0501USA00441

PATIENT
  Age: 56 Year
  Sex: Female

DRUGS (12)
  1. VIOXX [Suspect]
     Indication: INTERVERTEBRAL DISC PROTRUSION
     Route: 048
     Dates: start: 20040304, end: 20040309
  2. ALLEGRA [Concomitant]
     Route: 065
  3. AMITRIPTYLIN [Concomitant]
     Route: 065
  4. ASACOL [Concomitant]
     Route: 065
  5. ATENOLOL [Concomitant]
     Route: 065
  6. DETROL [Concomitant]
     Route: 065
  7. ESTRATEST H.S. [Concomitant]
     Route: 065
  8. NEXIUM [Concomitant]
     Route: 065
  9. [THERAPY UNSPECIFIED] [Concomitant]
     Route: 065
  10. ULTRACET [Concomitant]
     Route: 065
  11. ZOLOFT [Concomitant]
     Route: 065
  12. ORUVAIL [Concomitant]
     Route: 065

REACTIONS (2)
  - DIZZINESS [None]
  - PALPITATIONS [None]
